FAERS Safety Report 13662771 (Version 1)
Quarter: 2017Q2

REPORT INFORMATION
  Report Type: Spontaneous
  Country: US (occurrence: US)
  Receive Date: 20170616
  Receipt Date: 20170616
  Transmission Date: 20170830
  Serious: Yes (Disabling)
  Sender: FDA-Public Use
  Company Number: None

PATIENT
  Age: 57 Year
  Sex: Female
  Weight: 72 kg

DRUGS (1)
  1. LEVULAN KERASTICK [Suspect]
     Active Substance: AMINOLEVULINIC ACID HYDROCHLORIDE
     Indication: ACTINIC KERATOSIS
     Dates: start: 20170606, end: 20170606

REACTIONS (6)
  - Application site swelling [None]
  - Application site erythema [None]
  - Intentional product use issue [None]
  - Application site pruritus [None]
  - Application site vesicles [None]
  - Application site pain [None]

NARRATIVE: CASE EVENT DATE: 20170606
